FAERS Safety Report 10673494 (Version 1)
Quarter: 2014Q4

REPORT INFORMATION
  Report Type: Spontaneous
  Country: US (occurrence: None)
  Receive Date: 20141222
  Receipt Date: 20141222
  Transmission Date: 20150529
  Serious: No
  Sender: FDA-Public Use
  Company Number: None

PATIENT
  Age: 60 Year
  Sex: Female

DRUGS (1)
  1. SUTENT [Suspect]
     Active Substance: SUNITINIB MALATE
     Indication: ILL-DEFINED DISORDER
     Dosage: 25 MG DAILY FOR 4 WEEKS 2 WEEKS OFF; DAILY FOR 4 WEEKS, 2 WEEKS
     Route: 048
     Dates: start: 20140416

REACTIONS (1)
  - Cardiac disorder [None]
